FAERS Safety Report 8247386-8 (Version None)
Quarter: 2012Q1

REPORT INFORMATION
  Report Type: 
  Country: None (occurrence: None)
  Receive Date: 20120330
  Receipt Date: 20120327
  Transmission Date: 20120608
  Serious: No
  Sender: FDA-Public Use
  Company Number: US-PFIZER INC-2012079452

PATIENT
  Sex: Female

DRUGS (2)
  1. LYRICA [Suspect]
     Dosage: UNK
  2. LIPITOR [Suspect]
     Indication: BLOOD CHOLESTEROL
     Dosage: UNK

REACTIONS (5)
  - LIVER FUNCTION TEST ABNORMAL [None]
  - PAIN [None]
  - BLOOD TEST ABNORMAL [None]
  - ACCIDENT [None]
  - BACK DISORDER [None]
